FAERS Safety Report 4793490-6 (Version None)
Quarter: 2005Q4

REPORT INFORMATION
  Report Type: 
  Country: None (occurrence: None)
  Receive Date: 20051011
  Receipt Date: 20050829
  Transmission Date: 20060501
  Serious: No
  Sender: FDA-Public Use
  Company Number: US-BRISTOL-MYERS SQUIBB COMPANY-13093539

PATIENT
  Age: 39 Year
  Sex: Female
  Weight: 114 kg

DRUGS (4)
  1. GLUCOPHAGE XR [Suspect]
     Indication: DIABETES MELLITUS
     Dates: start: 20031215
  2. LOPRESSOR [Concomitant]
  3. ZOLOFT [Concomitant]
  4. MULTI-VITAMIN [Concomitant]

REACTIONS (1)
  - DIARRHOEA [None]
